FAERS Safety Report 9685140 (Version 1)
Quarter: 2013Q4

REPORT INFORMATION
  Report Type: Spontaneous
  Country: US (occurrence: None)
  Receive Date: 20131111
  Receipt Date: 20131111
  Transmission Date: 20140711
  Serious: Yes (Other)
  Sender: FDA-Public Use
  Company Number: None

PATIENT
  Age: 78 Year
  Sex: Male
  Weight: 83.92 kg

DRUGS (7)
  1. ELIQUIS [Suspect]
     Indication: ATRIAL FIBRILLATION
     Dosage: 1-5MG TWICE DAILY, TAKEN BY MOUTH
     Dates: start: 20130928, end: 20131110
  2. ELIQUIS [Concomitant]
  3. SILDENAFIL CITRATE [Concomitant]
  4. GNC MULTI VITAMEN [Concomitant]
  5. MEGA RED KRILL OIL [Concomitant]
  6. VITAMEN D [Concomitant]
  7. CO-Q-10 [Concomitant]

REACTIONS (1)
  - Pruritus [None]
